FAERS Safety Report 16532679 (Version 1)
Quarter: 2019Q3

REPORT INFORMATION
  Report Type: Other
  Country: DE (occurrence: DE)
  Receive Date: 20190705
  Receipt Date: 20190705
  Transmission Date: 20191004
  Serious: Yes (Other)
  Sender: FDA-Public Use
  Company Number: DE-APOTEX-2019AP017612

PATIENT

DRUGS (2)
  1. PAROXETINE. [Suspect]
     Active Substance: PAROXETINE
     Indication: ANXIETY DISORDER
     Dosage: 10 MG, QD, 10 [MG/D ]
     Route: 064
     Dates: start: 20170715, end: 20180410
  2. L-THYROXIN                         /00068001/ [Concomitant]
     Active Substance: LEVOTHYROXINE
     Indication: HYPOTHYROIDISM
     Dosage: 75 ?G, QD, 75 [?G/D ]
     Route: 064
     Dates: start: 20170715, end: 20180410

REACTIONS (4)
  - Infantile apnoea [Recovered/Resolved]
  - Neonatal seizure [Recovered/Resolved]
  - Foetal exposure during pregnancy [Unknown]
  - Cyanosis neonatal [Recovered/Resolved]

NARRATIVE: CASE EVENT DATE: 20180410
